FAERS Safety Report 5724970-4 (Version None)
Quarter: 2008Q2

REPORT INFORMATION
  Report Type: 
  Country: None (occurrence: None)
  Receive Date: 20080501
  Receipt Date: 20080425
  Transmission Date: 20081010
  Serious: Yes (Other)
  Sender: FDA-Public Use
  Company Number: JP-AVENTIS-200813794GDDC

PATIENT
  Age: 74 Year
  Sex: Female

DRUGS (3)
  1. RIFADIN [Suspect]
     Route: 048
     Dates: start: 20070823
  2. CLARITHROMYCIN [Suspect]
     Route: 048
     Dates: start: 20070823
  3. ETHAMBUTOL HYDROCHLORIDE [Suspect]
     Route: 048
     Dates: start: 20070823

REACTIONS (1)
  - INAPPROPRIATE ANTIDIURETIC HORMONE SECRETION [None]
